FAERS Safety Report 7480338-4 (Version None)
Quarter: 2011Q2

REPORT INFORMATION
  Report Type: 
  Country: None (occurrence: None)
  Receive Date: 20110504
  Receipt Date: 20110421
  Transmission Date: 20111010
  Serious: Yes (Other)
  Sender: FDA-Public Use
  Company Number: 20110335

PATIENT
  Sex: Male

DRUGS (8)
  1. SINEMET [Concomitant]
  2. HYDROCHLOROTHIAZIDE [Concomitant]
  3. MELOXICAM [Concomitant]
  4. SYNTHROID [Concomitant]
  5. CALCUIM [Concomitant]
  6. DEXAMETHASONE SODIUM PHOSPHATE [Suspect]
     Indication: OSTEOARTHRITIS
     Dosage: RECEIVED 2 OF 3 DOSE COURSE EPIDURAL
     Route: 008
     Dates: start: 20110208, end: 20110308
  7. DEXAMETHASONE SODIUM PHOSPHATE [Suspect]
     Indication: INTERVERTEBRAL DISC DEGENERATION
     Dosage: RECEIVED 2 OF 3 DOSE COURSE EPIDURAL
     Route: 008
     Dates: start: 20110208, end: 20110308
  8. ASPIRIN [Concomitant]

REACTIONS (3)
  - DIZZINESS [None]
  - PAIN IN EXTREMITY [None]
  - HYPOAESTHESIA [None]
